FAERS Safety Report 22538204 (Version 1)
Quarter: 2023Q2

REPORT INFORMATION
  Report Type: Other
  Country: GB (occurrence: GB)
  Receive Date: 20230608
  Receipt Date: 20230608
  Transmission Date: 20230722
  Serious: Yes (Hospitalization, Other)
  Sender: FDA-Public Use
  Company Number: GB-CELLTRION INC.-2023GB011606

PATIENT

DRUGS (8)
  1. RITUXIMAB [Suspect]
     Active Substance: RITUXIMAB
     Indication: Burkitt^s lymphoma
     Dosage: SHE RECEIVED FIRST LINE SYSTEMIC TREATMENT WITH INTER RITUX GROUP C3 B- NHL 2010 PROTOCOL, (THIS IS
     Route: 065
     Dates: start: 20220818, end: 20230101
  2. RITUXIMAB [Suspect]
     Active Substance: RITUXIMAB
     Dosage: SHE RECEIVED FIRST LINE SYSTEMIC TREATMENT WITH INTER RITUX GROUP C3 B- NHL 2010 PROTOCOL, (THIS IS
     Route: 065
     Dates: start: 20220818, end: 20230101
  3. RITUXIMAB [Suspect]
     Active Substance: RITUXIMAB
     Dosage: SHE RECEIVED SECOND LINE OF SYSTEMIC TREATMENT WITH R-ICE (RITUXIMAB, IFOSFAMIDE, CARBOPLATIN AND ET
     Route: 065
     Dates: start: 20230328, end: 20230425
  4. RITUXIMAB [Suspect]
     Active Substance: RITUXIMAB
     Dosage: SHE RECEIVED SECOND LINE OF SYSTEMIC TREATMENT WITH R-ICE (RITUXIMAB, IFOSFAMIDE, CARBOPLATIN AND ET
     Route: 065
     Dates: start: 20230328, end: 20230425
  5. CARBOPLATIN [Suspect]
     Active Substance: CARBOPLATIN
     Indication: Burkitt^s lymphoma
     Dosage: SHE RECEIVED SECOND LINE OF SYSTEMIC TREATMENT WITH R-ICE (RITUXIMAB, IFOSFAMIDE, CARBOPLATIN AND ET
     Route: 065
     Dates: start: 20230328, end: 20230425
  6. ETOPOSIDE [Suspect]
     Active Substance: ETOPOSIDE
     Indication: Burkitt^s lymphoma
     Dosage: SHE RECEIVED SECOND LINE OF SYSTEMIC TREATMENT WITH R-ICE (RITUXIMAB, IFOSFAMIDE, CARBOPLATIN AND ET
     Route: 065
     Dates: start: 20230328, end: 20230425
  7. IFOSFAMIDE [Suspect]
     Active Substance: IFOSFAMIDE
     Indication: Burkitt^s lymphoma
     Dosage: SHE RECEIVED SECOND LINE OF SYSTEMIC TREATMENT WITH R-ICE (RITUXIMAB, IFOSFAMIDE, CARBOPLATIN AND ET
     Route: 065
     Dates: start: 20230328, end: 20230425
  8. CASPOFUNGIN [Concomitant]
     Active Substance: CASPOFUNGIN

REACTIONS (3)
  - Disease progression [Unknown]
  - Febrile neutropenia [Recovered/Resolved]
  - Product use issue [Unknown]
